FAERS Safety Report 11576912 (Version 3)
Quarter: 2015Q4

REPORT INFORMATION
  Report Type: Spontaneous
  Country: BR (occurrence: BR)
  Receive Date: 20150930
  Receipt Date: 20151030
  Transmission Date: 20160304
  Serious: Yes (Other)
  Sender: FDA-Public Use
  Company Number: BR-SA-2015SA148194

PATIENT
  Age: 73 Year
  Sex: Male
  Weight: 67.5 kg

DRUGS (12)
  1. CARVEDILOL. [Concomitant]
     Active Substance: CARVEDILOL
     Indication: HYPERTENSION
     Route: 048
     Dates: start: 20141210
  2. OMEPRAZOLE. [Concomitant]
     Active Substance: OMEPRAZOLE
     Route: 048
     Dates: start: 20141210
  3. VITAMIN B12 [Concomitant]
     Active Substance: CYANOCOBALAMIN
  4. MAREVAN [Concomitant]
     Active Substance: WARFARIN SODIUM
  5. CALCITRIOL. [Concomitant]
     Active Substance: CALCITRIOL
     Dosage: 3 TIMES A WEEK
  6. CALCIUM CARBONATE. [Concomitant]
     Active Substance: CALCIUM CARBONATE
  7. LEVOTHYROXINE. [Concomitant]
     Active Substance: LEVOTHYROXINE
     Indication: HYPOTHYROIDISM
     Route: 048
     Dates: start: 20141210
  8. CARVEDILOL. [Concomitant]
     Active Substance: CARVEDILOL
     Indication: TYPE IIA HYPERLIPIDAEMIA
     Route: 048
     Dates: start: 20141210
  9. FUROSEMIDE. [Concomitant]
     Active Substance: FUROSEMIDE
  10. AMIODARONE [Concomitant]
     Active Substance: AMIODARONE
  11. RENAGEL [Suspect]
     Active Substance: SEVELAMER HYDROCHLORIDE
     Indication: HYPERPHOSPHATAEMIA
     Route: 048
     Dates: start: 201309
  12. VITAMIN D [Concomitant]
     Active Substance: CHOLECALCIFEROL
     Dosage: DOSE: 15000 (UNSPECIFIED UNITS)

REACTIONS (3)
  - Obesity [Unknown]
  - Choking [Unknown]
  - Dysphagia [Unknown]

NARRATIVE: CASE EVENT DATE: 201508
